FAERS Safety Report 5670230-X (Version None)
Quarter: 2008Q2

REPORT INFORMATION
  Report Type: 
  Country: None (occurrence: None)
  Receive Date: 20080229
  Receipt Date: 20070215
  Transmission Date: 20081010
  Serious: No
  Sender: FDA-Public Use
  Company Number: 236722

PATIENT
  Age: 13 Year
  Sex: Male

DRUGS (5)
  1. NUTROPIN AQ [Suspect]
     Indication: GROWTH HORMONE DEFICIENCY
     Dosage: 1.8 MG, QD, SUBCUTANEOUS
     Route: 058
     Dates: start: 20040526, end: 20061229
  2. DEPAKOTE ER [Concomitant]
  3. LEVOTHYROXINE SODIUM [Concomitant]
  4. RISPERDAL [Concomitant]
  5. SEROQUEL [Concomitant]

REACTIONS (1)
  - OSTEONECROSIS [None]
